FAERS Safety Report 9116854 (Version 1)
Quarter: 2013Q1

REPORT INFORMATION
  Report Type: Spontaneous
  Country: MX (occurrence: MX)
  Receive Date: 20130225
  Receipt Date: 20130225
  Transmission Date: 20140127
  Serious: Yes (Death, Hospitalization, Other)
  Sender: FDA-Public Use
  Company Number: PHHY2012MX118239

PATIENT
  Sex: Male

DRUGS (2)
  1. GLIVEC [Suspect]
     Indication: CHRONIC MYELOID LEUKAEMIA
     Dosage: 400 MG, UNK
     Dates: start: 20090217
  2. GLIVEC [Suspect]
     Dosage: 600 MG, UNK
     Dates: end: 20121218

REACTIONS (9)
  - Multi-organ failure [Fatal]
  - Septic shock [Fatal]
  - Blast crisis in myelogenous leukaemia [Fatal]
  - Malaise [Not Recovered/Not Resolved]
  - Thrombocytopenia [Unknown]
  - Anaemia [Unknown]
  - Asthenia [Unknown]
  - Hyperhidrosis [Unknown]
  - No therapeutic response [Unknown]
